FAERS Safety Report 18855867 (Version 1)
Quarter: 2021Q1

REPORT INFORMATION
  Report Type: Spontaneous
  Country: GB (occurrence: GB)
  Receive Date: 20210206
  Receipt Date: 20210206
  Transmission Date: 20210420
  Serious: Yes (Other)
  Sender: FDA-Public Use
  Company Number: GB-AUROBINDO-AUR-APL-2021-005339

PATIENT
  Age: 46 Year
  Sex: Female
  Weight: 42 kg

DRUGS (2)
  1. ACICLOVIR [Suspect]
     Active Substance: ACYCLOVIR
     Indication: ILL-DEFINED DISORDER
     Dosage: 800 MILLIGRAM (5 A DAY)
     Route: 048
     Dates: start: 20201029, end: 20201102
  2. MULTIVITAMIN [Concomitant]
     Active Substance: VITAMINS
     Indication: ILL-DEFINED DISORDER
     Dosage: UNK
     Route: 065

REACTIONS (4)
  - Abdominal pain upper [Unknown]
  - Weight decreased [Unknown]
  - Diarrhoea [Unknown]
  - Adverse drug reaction [Recovered/Resolved with Sequelae]

NARRATIVE: CASE EVENT DATE: 20201031
